FAERS Safety Report 26019811 (Version 1)
Quarter: 2025Q4

REPORT INFORMATION
  Report Type: Spontaneous
  Country: RU (occurrence: RU)
  Receive Date: 20251110
  Receipt Date: 20251110
  Transmission Date: 20260117
  Serious: Yes (Other)
  Sender: STRIDES
  Company Number: None

PATIENT
  Age: 68 Year
  Sex: Female

DRUGS (5)
  1. PREDNISOLONE [Suspect]
     Active Substance: PREDNISOLONE
     Indication: Follicular lymphoma
     Dosage: 8 COURSES (R-CHOP)
     Route: 065
     Dates: start: 2021
  2. DOXORUBICIN [Suspect]
     Active Substance: DOXORUBICIN
     Indication: Follicular lymphoma
     Dosage: 8 COURSES (R-CHOP)
     Route: 065
     Dates: start: 2021
  3. RITUXIMAB [Suspect]
     Active Substance: RITUXIMAB
     Indication: Follicular lymphoma
     Dosage: 8 COURSES, R-CHOP
     Route: 065
     Dates: start: 2021
  4. CYCLOPHOSPHAMIDE [Suspect]
     Active Substance: CYCLOPHOSPHAMIDE
     Indication: Follicular lymphoma
     Dosage: 8 COURSES (R-CHOP)
     Route: 065
     Dates: start: 2021
  5. VINCRISTINE [Suspect]
     Active Substance: VINCRISTINE
     Indication: Follicular lymphoma
     Dosage: 8 COURSES (R-CHOP)
     Route: 065
     Dates: start: 2021

REACTIONS (1)
  - Agranulocytosis [Unknown]
